FAERS Safety Report 4956931-7 (Version None)
Quarter: 2006Q1

REPORT INFORMATION
  Report Type: 
  Country: None (occurrence: None)
  Receive Date: 20060329
  Receipt Date: 20060317
  Transmission Date: 20060701
  Serious: Yes (Hospitalization)
  Sender: FDA-Public Use
  Company Number: US-NOVOPROD-251660

PATIENT
  Age: 73 Year
  Sex: Male

DRUGS (10)
  1. NOVOLOG [Suspect]
     Indication: INSULIN-REQUIRING TYPE II DIABETES MELLITUS
     Dosage: 6 IU, TID
     Route: 058
     Dates: start: 20060224
  2. LANTUS [Concomitant]
     Indication: INSULIN-REQUIRING TYPE II DIABETES MELLITUS
     Dosage: 26 IU, QD
     Dates: start: 20060224
  3. ZOCOR [Concomitant]
     Indication: BLOOD CHOLESTEROL INCREASED
  4. PLAVIX [Concomitant]
     Indication: ILL-DEFINED DISORDER
  5. FLOMAX [Concomitant]
     Indication: ILL-DEFINED DISORDER
  6. ZESTRIL [Concomitant]
     Indication: BLOOD PRESSURE INCREASED
  7. IMDUR [Concomitant]
     Indication: BLOOD PRESSURE INCREASED
  8. NADOLOL [Concomitant]
     Indication: BLOOD PRESSURE INCREASED
  9. HYDROCHLOROTHIAZIDE [Concomitant]
     Indication: BLOOD PRESSURE INCREASED
  10. LORATADINE [Concomitant]
     Indication: SINUS CONGESTION

REACTIONS (1)
  - CHEST PAIN [None]
